FAERS Safety Report 23453479 (Version 2)
Quarter: 2024Q1

REPORT INFORMATION
  Report Type: Spontaneous
  Country: PL (occurrence: PL)
  Receive Date: 20240129
  Receipt Date: 20240311
  Transmission Date: 20240409
  Serious: Yes (Hospitalization)
  Sender: FDA-Public Use
  Company Number: PL-TEVA-VS-3136383

PATIENT
  Age: 11 Year
  Sex: Male

DRUGS (6)
  1. METHOTREXATE [Suspect]
     Active Substance: METHOTREXATE
     Indication: T-cell type acute leukaemia
     Route: 037
  2. CYCLOPHOSPHAMIDE [Suspect]
     Active Substance: CYCLOPHOSPHAMIDE
     Indication: T-cell type acute leukaemia
     Route: 050
  3. VINCRISTINE [Suspect]
     Active Substance: VINCRISTINE
     Indication: T-cell type acute leukaemia
     Route: 042
  4. DAUNORUBICIN [Suspect]
     Active Substance: DAUNORUBICIN
     Indication: T-cell type acute leukaemia
     Route: 050
  5. PEGASPARGASE [Suspect]
     Active Substance: PEGASPARGASE
     Indication: T-cell type acute leukaemia
     Dosage: 2500 UI/M2
     Route: 050
  6. PREDNISONE [Suspect]
     Active Substance: PREDNISONE
     Indication: T-cell type acute leukaemia
     Route: 042

REACTIONS (8)
  - Bone marrow failure [Recovering/Resolving]
  - Myelosuppression [Recovering/Resolving]
  - Cholecystitis [Recovering/Resolving]
  - Hepatitis [Recovering/Resolving]
  - Pneumonia fungal [Recovering/Resolving]
  - Hypokalaemia [Recovering/Resolving]
  - Gastrooesophageal haemorrhage [Recovering/Resolving]
  - Pancreatitis [Recovering/Resolving]
